FAERS Safety Report 7946435-1 (Version None)
Quarter: 2011Q4

REPORT INFORMATION
  Report Type: 
  Country: None (occurrence: None)
  Receive Date: 20111129
  Receipt Date: 20110928
  Transmission Date: 20120403
  Serious: No
  Sender: FDA-Public Use
  Company Number: US-BAYER-2011-094117

PATIENT
  Age: 81 Year
  Sex: Female
  Weight: 61.224 kg

DRUGS (7)
  1. VITAMIN D [Concomitant]
  2. MIRTAZAPINE [Concomitant]
  3. SYNTHROID [Concomitant]
  4. VITAMIN B-12 [Concomitant]
  5. ALEVE (CAPLET) [Suspect]
     Indication: URINARY TRACT PAIN
     Dosage: 1 DF, ONCE
     Route: 048
     Dates: start: 20110927, end: 20110927
  6. DITROPAN [Concomitant]
  7. PENTASA [Concomitant]

REACTIONS (1)
  - PAIN [None]
